FAERS Safety Report 5934000-7 (Version None)
Quarter: 2008Q4

REPORT INFORMATION
  Report Type: 
  Country: None (occurrence: None)
  Receive Date: 20081029
  Receipt Date: 20081020
  Transmission Date: 20090506
  Serious: Yes (Other)
  Sender: FDA-Public Use
  Company Number: US-AVENTIS-200814140US

PATIENT
  Sex: Female

DRUGS (16)
  1. KETEK [Suspect]
     Indication: EAR INFECTION
     Dosage: DOSE: UNK
     Dates: start: 20060801, end: 20060901
  2. LEVAQUIN [Suspect]
     Dosage: DOSE: UNK
  3. FLAGYL [Suspect]
     Dosage: DOSE: UNK
  4. AVALIDE [Suspect]
     Dosage: DOSE: UNK
  5. HYDROCORTISONE EAR DROPS [Concomitant]
     Indication: INFLAMMATION
     Dosage: DOSE: UNK
     Dates: start: 20060901
  6. TOPICAL PRODUCTS FOR JOINT AND MUSCULAR PAIN [Concomitant]
     Dosage: DOSE: UNK
     Dates: start: 20060901
  7. DILAUDID [Concomitant]
     Dosage: DOSE: USE ONCE DISCHARGED
     Dates: start: 20060901
  8. ACCUPRIL [Concomitant]
     Dosage: DOSE: UNK
     Dates: start: 20060901
  9. LOTRIMIN [Concomitant]
     Dosage: DOSE: UNK
  10. DIFLUCAN [Concomitant]
     Dosage: DOSE: FOR FIVE DAYS
  11. NON-MEDICATION THERAPY [Concomitant]
     Dosage: DOSE: UNK
  12. MIRAPEX [Concomitant]
     Dosage: DOSE: 0.25 FOR THREE MONTHS
  13. VOSOL HC OTIC [Concomitant]
     Dosage: DOSE: UNK
  14. ALLEGRA-D 12 HOUR [Concomitant]
     Dosage: DOSE: UNK
  15. CIPRODEX                           /01633401/ [Concomitant]
     Dosage: DOSE: UNK
  16. TYLENOL W/ CODEINE NO. 3 [Concomitant]
     Dosage: DOSE: UNK

REACTIONS (6)
  - CHROMATURIA [None]
  - HEPATIC FAILURE [None]
  - HEPATITIS [None]
  - NAUSEA [None]
  - PYREXIA [None]
  - VOMITING [None]
